FAERS Safety Report 5386099-7 (Version None)
Quarter: 2007Q3

REPORT INFORMATION
  Report Type: 
  Country: None (occurrence: None)
  Receive Date: 20070710
  Receipt Date: 20070626
  Transmission Date: 20080115
  Serious: Yes (Life-Threatening)
  Sender: FDA-Public Use
  Company Number: 2007P1000162

PATIENT
  Age: 29 Year
  Sex: Male

DRUGS (3)
  1. NICARDIPINE HYDROCHLORIDE [Suspect]
     Indication: HYPERTENSION
     Dosage: 10 MG; QH; IV
     Route: 042
     Dates: start: 20070228, end: 20070306
  2. AMLODIPINE BESYLATE [Concomitant]
  3. NU-LOTAN [Concomitant]

REACTIONS (5)
  - ABDOMINAL PAIN [None]
  - APPARENT LIFE THREATENING EVENT [None]
  - COLITIS [None]
  - DISSEMINATED INTRAVASCULAR COAGULATION [None]
  - ILEUS [None]
